FAERS Safety Report 7023166-6 (Version None)
Quarter: 2010Q3

REPORT INFORMATION
  Report Type: 
  Country: None (occurrence: None)
  Receive Date: 20100915
  Receipt Date: 20100706
  Transmission Date: 20110219
  Serious: Yes (Other)
  Sender: FDA-Public Use
  Company Number: 2010SCPR001913

PATIENT
  Age: 71 Year
  Sex: Female

DRUGS (9)
  1. MEGESTROL ACETATE [Suspect]
     Indication: APPETITE DISORDER
     Dosage: 5 ML, BID, ORAL
     Route: 048
     Dates: start: 20100623, end: 20100705
  2. ACETAMINOPHEN [Suspect]
     Indication: PRODUCT USED FOR UNKNOWN INDICATION
     Dosage: Q
  3. LANTUS [Concomitant]
  4. PRILOSEC /066121/ (OMEPRAZOLE) [Concomitant]
  5. OS-CAL /00108001/ (CALCIUM CARBONATE) [Concomitant]
  6. ACIDOPHILUS (LACTOBACILLUS ACIDOPHILUS) [Concomitant]
  7. COLACE (DOCUSATE SODIUM) [Concomitant]
  8. DITROPAN XL [Concomitant]
  9. PAXIL [Concomitant]

REACTIONS (1)
  - BLOOD GLUCOSE INCREASED [None]
